FAERS Safety Report 7829458-2 (Version None)
Quarter: 2011Q4

REPORT INFORMATION
  Report Type: 
  Country: None (occurrence: None)
  Receive Date: 20111020
  Receipt Date: 20111018
  Transmission Date: 20120403
  Serious: Yes (Hospitalization, Other)
  Sender: FDA-Public Use
  Company Number: US-ROCHE-533401

PATIENT
  Sex: Male
  Weight: 72.6 kg

DRUGS (2)
  1. ACCUTANE [Suspect]
     Indication: ACNE
     Dosage: REPORTED AS 40MG BID
     Route: 065
     Dates: start: 20000810, end: 20001120
  2. RITALIN [Concomitant]
     Indication: ATTENTION DEFICIT/HYPERACTIVITY DISORDER

REACTIONS (18)
  - FLUID OVERLOAD [None]
  - HAEMOLYTIC ANAEMIA [None]
  - COLITIS [None]
  - ILEITIS [None]
  - THROMBOCYTOPENIA [None]
  - INFLAMMATORY BOWEL DISEASE [None]
  - INTESTINAL HAEMORRHAGE [None]
  - DEPERSONALISATION [None]
  - OEDEMA [None]
  - DRY SKIN [None]
  - DELUSION [None]
  - ANXIETY [None]
  - DISSEMINATED INTRAVASCULAR COAGULATION [None]
  - DECREASED APPETITE [None]
  - COLITIS ULCERATIVE [None]
  - INSOMNIA [None]
  - GASTROINTESTINAL DISORDER [None]
  - DEPRESSION [None]
